FAERS Safety Report 10109235 (Version 2)
Quarter: 2014Q3

REPORT INFORMATION
  Report Type: Spontaneous
  Country: US (occurrence: US)
  Receive Date: 20140425
  Receipt Date: 20140918
  Transmission Date: 20150326
  Serious: Yes (Hospitalization)
  Sender: FDA-Public Use
  Company Number: US-BAYER-2014-060363

PATIENT
  Age: 39 Year
  Sex: Female
  Weight: 90.7 kg

DRUGS (5)
  1. SPIRONOLACTONE. [Concomitant]
     Active Substance: SPIRONOLACTONE
     Dosage: UNK
     Dates: start: 20050616, end: 20060822
  2. TRICOR [Concomitant]
     Active Substance: FENOFIBRATE
  3. YASMIN [Suspect]
     Active Substance: DROSPIRENONE\ETHINYL ESTRADIOL
     Indication: MENSTRUAL CYCLE MANAGEMENT
     Dosage: UNK
     Dates: start: 1989, end: 2003
  4. IBUPROFEN [IBUPROFEN] [Concomitant]
     Active Substance: IBUPROFEN
     Dosage: UNK UNK, PRN
  5. YASMIN [Suspect]
     Active Substance: DROSPIRENONE\ETHINYL ESTRADIOL
     Indication: CONTRACEPTION

REACTIONS (7)
  - Deep vein thrombosis [None]
  - Injury [None]
  - Pain [None]
  - Emotional distress [None]
  - Anhedonia [None]
  - Quality of life decreased [None]
  - Anxiety [None]

NARRATIVE: CASE EVENT DATE: 20050817
